FAERS Safety Report 6997399-9 (Version None)
Quarter: 2010Q3

REPORT INFORMATION
  Report Type: 
  Country: None (occurrence: None)
  Receive Date: 20100918
  Receipt Date: 20091008
  Transmission Date: 20110219
  Serious: No
  Sender: FDA-Public Use
  Company Number: US-WYE-H11541809

PATIENT
  Sex: Female
  Weight: 62.65 kg

DRUGS (2)
  1. PRISTIQ [Suspect]
     Indication: DEPRESSION
     Route: 048
     Dates: start: 20090801
  2. CLONAZEPAM [Concomitant]

REACTIONS (8)
  - ANGER [None]
  - ANXIETY [None]
  - DECREASED APPETITE [None]
  - INSOMNIA [None]
  - LOGORRHOEA [None]
  - MANIA [None]
  - NERVOUSNESS [None]
  - PSYCHOMOTOR HYPERACTIVITY [None]
